FAERS Safety Report 15749868 (Version 1)
Quarter: 2018Q4

REPORT INFORMATION
  Report Type: Spontaneous
  Country: AU (occurrence: AU)
  Receive Date: 20181221
  Receipt Date: 20181221
  Transmission Date: 20190205
  Serious: Yes (Other)
  Sender: FDA-Public Use
  Company Number: AU-AMGEN-AUSSP2018180209

PATIENT
  Age: 73 Year
  Sex: Female

DRUGS (2)
  1. PROLIA [Suspect]
     Active Substance: DENOSUMAB
     Indication: BONE DENSITY ABNORMAL
     Dosage: UNK, Q6MO
     Route: 065
  2. TAMOXIFEN [Concomitant]
     Active Substance: TAMOXIFEN
     Dosage: UNK

REACTIONS (7)
  - Hydrocephalus [Unknown]
  - Cerebral haemorrhage [Unknown]
  - Decreased appetite [Unknown]
  - Breast cancer [Unknown]
  - General physical health deterioration [Unknown]
  - Weight decreased [Unknown]
  - Hypoaesthesia [Unknown]
